FAERS Safety Report 4551122-6 (Version None)
Quarter: 2005Q1

REPORT INFORMATION
  Report Type: 
  Country: None (occurrence: None)
  Receive Date: 20050107
  Receipt Date: 20041227
  Transmission Date: 20050727
  Serious: Yes (Hospitalization)
  Sender: FDA-Public Use
  Company Number: T03-USA-03668-01

PATIENT
  Age: 82 Year
  Sex: Female
  Weight: 57.6068 kg

DRUGS (16)
  1. MEMANTINE (OPEN-LABEL, PHASE C) (MEMANTINE) [Suspect]
     Indication: DEMENTIA ALZHEIMER'S TYPE
     Dosage: 20 MG QD PO
     Route: 048
     Dates: start: 20030508, end: 20030813
  2. MEMANTINE (OPEN LABEL, PHASE B) (MEMANTINE) [Suspect]
     Indication: DEMENTIA ALZHEIMER'S TYPE
     Dosage: 20 MG QD PO
     Route: 048
     Dates: start: 90221209, end: 20030507
  3. MEMANTINE (DOUBLE BLIND, PHASE A) (MEMANTINE) [Suspect]
     Indication: DEMENTIA ALZHEIMER'S TYPE
     Dosage: 20 MG QD PO
     Route: 048
     Dates: start: 20021016, end: 20021208
  4. BISOPROLOL FUMARATE [Suspect]
     Indication: HYPERTENSION
     Dosage: 5 MG QD PO
     Route: 048
     Dates: start: 19800101
  5. SERTRALINE HCL [Concomitant]
  6. GINKGO BILOBA [Concomitant]
  7. VITAMIN E [Concomitant]
  8. MULTI-VITAMINS [Concomitant]
  9. ENTERIC COATED ASPIRIN (ACETYLSALICYLIC ACID ENTERIC COATED) [Concomitant]
  10. CALCIUM GLUCONATE [Concomitant]
  11. ESOMEPRAZOLE [Concomitant]
  12. MELATONIN [Concomitant]
  13. LESCOL [Concomitant]
  14. LOSARTAN POTASSIUM [Concomitant]
  15. VALSARTAN [Concomitant]
  16. PANTOPRAZOLE (PANTOPRAZOLE) [Concomitant]

REACTIONS (19)
  - CARDIAC MURMUR [None]
  - CEREBRAL ISCHAEMIA [None]
  - COMPUTERISED TOMOGRAM THORAX ABNORMAL [None]
  - CONDITION AGGRAVATED [None]
  - DILATATION ATRIAL [None]
  - DIZZINESS [None]
  - ELECTROCARDIOGRAM QT PROLONGED [None]
  - FALL [None]
  - HEAD INJURY [None]
  - LOSS OF CONSCIOUSNESS [None]
  - METABOLIC DISORDER [None]
  - MITRAL VALVE DISEASE [None]
  - MYOCARDIAL ISCHAEMIA [None]
  - PROTEIN URINE PRESENT [None]
  - RHEUMATOID ARTHRITIS [None]
  - SINUS BRADYCARDIA [None]
  - SYNCOPE [None]
  - URINE KETONE BODY PRESENT [None]
  - VENTRICULAR HYPERTROPHY [None]
